FAERS Safety Report 25191038 (Version 1)
Quarter: 2025Q2

REPORT INFORMATION
  Report Type: Spontaneous
  Country: US (occurrence: US)
  Receive Date: 20250411
  Receipt Date: 20250411
  Transmission Date: 20250716
  Serious: Yes (Other)
  Sender: TEVA
  Company Number: US-TEVA-VS-3318682

PATIENT

DRUGS (3)
  1. AJOVY [Suspect]
     Active Substance: FREMANEZUMAB-VFRM
     Indication: Product used for unknown indication
     Route: 065
  2. DIAMOX SEQUELS [Suspect]
     Active Substance: ACETAZOLAMIDE
     Indication: CSF pressure increased
     Route: 065
  3. UBRELVY [Concomitant]
     Active Substance: UBROGEPANT
     Indication: Product used for unknown indication
     Route: 065

REACTIONS (6)
  - Nephrolithiasis [Unknown]
  - Anxiety [Unknown]
  - Arnold-Chiari malformation [Unknown]
  - Tinnitus [Unknown]
  - Dizziness [Unknown]
  - Drug ineffective [Unknown]
